FAERS Safety Report 8062465-6 (Version None)
Quarter: 2012Q1

REPORT INFORMATION
  Report Type: 
  Country: None (occurrence: None)
  Receive Date: 20120113
  Receipt Date: 20120106
  Transmission Date: 20120608
  Serious: Yes (Hospitalization, Other)
  Sender: FDA-Public Use
  Company Number: 2012MA000370

PATIENT
  Age: 82 Year
  Sex: Male

DRUGS (7)
  1. SERTRALINE HYDROCHLORIDE [Concomitant]
  2. TRAMADOL HYDROCHLORIDE [Suspect]
     Indication: ARTHRALGIA
     Dosage: 50 MG;TID
  3. TRAMADOL HYDROCHLORIDE [Suspect]
     Indication: FALL
     Dosage: 50 MG;TID
  4. RIVASTIGMINE [Concomitant]
  5. ARTHROTEC [Concomitant]
  6. LEVODOPA-BENSERAZIDE [Concomitant]
  7. TRAMADOL HYDROCHLORIDE AND ACETAMINOPHEN [Concomitant]

REACTIONS (1)
  - HYPOGLYCAEMIA [None]
